FAERS Safety Report 15763908 (Version 1)
Quarter: 2018Q4

REPORT INFORMATION
  Report Type: Spontaneous
  Country: GB (occurrence: GB)
  Receive Date: 20181227
  Receipt Date: 20181227
  Transmission Date: 20190205
  Serious: Yes (Other)
  Sender: FDA-Public Use
  Company Number: GB-TEVA-2018-GB-992398

PATIENT
  Age: 66 Year
  Sex: Female
  Weight: 52.61 kg

DRUGS (6)
  1. IBANDRONIC ACID. [Concomitant]
     Active Substance: IBANDRONIC ACID
  2. EVACAL D3 CHEWABLE [Concomitant]
  3. ACTAVIS GROUP PTC TOPIRAMATE [Suspect]
     Active Substance: TOPIRAMATE
     Indication: MIGRAINE PROPHYLAXIS
     Route: 048
     Dates: start: 20181126, end: 20181128
  4. SOLIFENACIN [Concomitant]
     Active Substance: SOLIFENACIN
  5. PROPRANOLOL [Concomitant]
     Active Substance: PROPRANOLOL HYDROCHLORIDE
  6. RANITIDINE. [Concomitant]
     Active Substance: RANITIDINE

REACTIONS (3)
  - Drug ineffective [Unknown]
  - Headache [Recovered/Resolved]
  - Visual impairment [Unknown]

NARRATIVE: CASE EVENT DATE: 20181127
